FAERS Safety Report 5829518-1 (Version None)
Quarter: 2008Q3

REPORT INFORMATION
  Report Type: 
  Country: None (occurrence: None)
  Receive Date: 20080731
  Receipt Date: 20080722
  Transmission Date: 20090109
  Serious: Yes (Other)
  Sender: FDA-Public Use
  Company Number: BR-PFIZER INC-2008053991

PATIENT
  Sex: Female
  Weight: 65 kg

DRUGS (3)
  1. DEPO-PROVERA SUSPENSION/INJ [Suspect]
     Indication: CONTRACEPTION
     Dates: start: 20071213, end: 20071213
  2. DEPO-PROVERA SUSPENSION/INJ [Suspect]
     Indication: UTERINE LEIOMYOMA
     Dates: start: 20080324, end: 20080324
  3. DEPO-PROVERA SUSPENSION/INJ [Suspect]
     Dates: start: 20080620, end: 20080620

REACTIONS (10)
  - ABDOMINAL PAIN UPPER [None]
  - ASTHENIA [None]
  - BLOOD PRESSURE INCREASED [None]
  - CRYING [None]
  - DIZZINESS [None]
  - HAEMATURIA [None]
  - HEADACHE [None]
  - NERVOUSNESS [None]
  - PAIN IN EXTREMITY [None]
  - TREMOR [None]
